FAERS Safety Report 5443959-6 (Version None)
Quarter: 2007Q3

REPORT INFORMATION
  Report Type: 
  Country: None (occurrence: None)
  Receive Date: 20070905
  Receipt Date: 20070824
  Transmission Date: 20080115
  Serious: Yes (Other)
  Sender: FDA-Public Use
  Company Number: US-PFIZER INC-2007073036

PATIENT
  Sex: Male
  Weight: 68 kg

DRUGS (5)
  1. CHANTIX [Suspect]
     Indication: SMOKING CESSATION THERAPY
  2. FEXOFENADINE [Concomitant]
  3. FEXOFENADINE [Concomitant]
  4. WARFARIN SODIUM [Concomitant]
  5. WARFARIN SODIUM [Concomitant]

REACTIONS (2)
  - DECREASED APPETITE [None]
  - MUSCULAR WEAKNESS [None]
